FAERS Safety Report 6893260-9 (Version None)
Quarter: 2010Q3

REPORT INFORMATION
  Report Type: 
  Country: None (occurrence: None)
  Receive Date: 20100731
  Receipt Date: 20090722
  Transmission Date: 20110219
  Serious: No
  Sender: FDA-Public Use
  Company Number: US-PFIZER INC-2009198104

PATIENT
  Sex: Female

DRUGS (5)
  1. FLAGYL [Suspect]
     Dosage: 500 MG, 2X/DAY
     Route: 048
     Dates: start: 20090331
  2. LAMISIL [Suspect]
     Dosage: 250 MG, 1X/DAY
     Route: 048
     Dates: start: 20090128
  3. DDAVP [Concomitant]
     Dosage: 0.4 MG, 1X/DAY
     Route: 048
  4. BUPROPION HYDROCHLORIDE [Concomitant]
     Dosage: 200 MG, 2X/DAY
     Route: 048
  5. TERBINAFINE HCL [Suspect]

REACTIONS (1)
  - ABDOMINAL DISCOMFORT [None]
